FAERS Safety Report 17705643 (Version 1)
Quarter: 2020Q2

REPORT INFORMATION
  Report Type: Spontaneous
  Country: FR (occurrence: FR)
  Receive Date: 20200424
  Receipt Date: 20200424
  Transmission Date: 20200714
  Serious: Yes (Other)
  Sender: FDA-Public Use
  Company Number: FR-TEVA-2020-FR-1226296

PATIENT
  Age: 80 Year
  Sex: Female
  Weight: 90 kg

DRUGS (8)
  1. MACROGOL 4000 [Interacting]
     Active Substance: POLYETHYLENE GLYCOL 4000
     Indication: CONSTIPATION
     Dosage: UNSPECIFIED
     Route: 048
  2. IBRANCE [Interacting]
     Active Substance: PALBOCICLIB
     Indication: BREAST CANCER
     Dosage: 100MG
     Route: 048
     Dates: start: 20171218, end: 20171231
  3. ALPRAZOLAM. [Concomitant]
     Active Substance: ALPRAZOLAM
     Indication: ANXIETY
     Dosage: 0.25MG
     Route: 048
     Dates: start: 20171113
  4. FULVESTRANT. [Suspect]
     Active Substance: FULVESTRANT
     Indication: BREAST CANCER
     Dosage: 500MG
     Route: 030
     Dates: start: 20171031, end: 20171231
  5. WARFARINE SODIQUE [Concomitant]
     Active Substance: WARFARIN SODIUM
     Indication: ANTICOAGULANT THERAPY
     Dosage: 2MG
     Route: 048
     Dates: start: 201705
  6. PAROXETINE (CHLORHYDRATE DE) ANHYDRE [Interacting]
     Active Substance: PAROXETINE
     Indication: DEPRESSION
     Dosage: 20MG
     Route: 048
  7. PARACETAMOL [Concomitant]
     Active Substance: ACETAMINOPHEN
     Indication: PAIN
     Dosage: 1000MG, IF NECESSARY
     Route: 048
  8. ROSUVASTATINE [Concomitant]
     Active Substance: ROSUVASTATIN
     Indication: BLOOD CHOLESTEROL
     Dosage: 5MG
     Route: 048

REACTIONS (2)
  - Neutropenia [Recovered/Resolved]
  - Drug interaction [Unknown]

NARRATIVE: CASE EVENT DATE: 20171231
